FAERS Safety Report 14562490 (Version 1)
Quarter: 2018Q1

REPORT INFORMATION
  Report Type: Spontaneous
  Country: US (occurrence: US)
  Receive Date: 20180222
  Receipt Date: 20180222
  Transmission Date: 20180509
  Serious: No
  Sender: FDA-Public Use
  Company Number: US-BAYER-2018-030531

PATIENT
  Sex: Male
  Weight: 27 kg

DRUGS (8)
  1. CORTISONE [Concomitant]
     Active Substance: CORTISONE\HYDROCORTISONE
     Dosage: UNK
  2. AMINO ACID [Concomitant]
     Active Substance: AMINO ACIDS
  3. FLONASE [Concomitant]
     Active Substance: FLUTICASONE PROPIONATE
  4. MIRALAX [Suspect]
     Active Substance: POLYETHYLENE GLYCOL 3350
     Indication: GASTROINTESTINAL DISORDER
     Dosage: 1 DF, BID
     Route: 048
     Dates: end: 2016
  5. PROVENTIL [Concomitant]
     Active Substance: ALBUTEROL
  6. DHA PACLITAXEL [Concomitant]
  7. CANNABIDIOL [Concomitant]
     Active Substance: CANNABIDIOL
  8. MAGNESIUM [Concomitant]
     Active Substance: MAGNESIUM

REACTIONS (2)
  - Product use issue [Unknown]
  - Product prescribing issue [Unknown]
